FAERS Safety Report 13926294 (Version 3)
Quarter: 2018Q3

REPORT INFORMATION
  Report Type: Spontaneous
  Country: US (occurrence: US)
  Receive Date: 20170831
  Receipt Date: 20180703
  Transmission Date: 20181010
  Serious: Yes (Hospitalization, Other)
  Sender: FDA-Public Use
  Company Number: US-DSJP-DSU-2017-133496

PATIENT

DRUGS (1)
  1. AZOR [Suspect]
     Active Substance: AMLODIPINE BESYLATE\OLMESARTAN MEDOXOMIL
     Indication: HYPERTENSION
     Dosage: 10?40 MG, QD
     Route: 048
     Dates: start: 20090319, end: 20170329

REACTIONS (5)
  - Sprue-like enteropathy [Recovering/Resolving]
  - Pancreatitis acute [Recovering/Resolving]
  - Diverticular perforation [Recovered/Resolved]
  - Haematochezia [Unknown]
  - Acute kidney injury [Recovered/Resolved]

NARRATIVE: CASE EVENT DATE: 20101026
